FAERS Safety Report 10609715 (Version 1)
Quarter: 2014Q4

REPORT INFORMATION
  Report Type: Spontaneous
  Country: BH (occurrence: BH)
  Receive Date: 20141126
  Receipt Date: 20141126
  Transmission Date: 20150529
  Serious: Yes (Death)
  Sender: FDA-Public Use
  Company Number: BH-B.I. PHARMACEUTICALS,INC./RIDGEFIELD-2014-BI-56470AE

PATIENT
  Age: 7 Decade
  Sex: Male

DRUGS (1)
  1. PRADAXA [Suspect]
     Active Substance: DABIGATRAN ETEXILATE MESYLATE
     Indication: ATRIAL FIBRILLATION
     Dosage: 220 MG
     Route: 065

REACTIONS (2)
  - Ischaemic stroke [Fatal]
  - Cerebrovascular accident [Fatal]
